FAERS Safety Report 25811833 (Version 1)
Quarter: 2025Q3

REPORT INFORMATION
  Report Type: Spontaneous
  Country: KR (occurrence: KR)
  Receive Date: 20250917
  Receipt Date: 20250917
  Transmission Date: 20251020
  Serious: Yes (Other)
  Sender: CSL BEHRING
  Company Number: KR-BEH-2025216835

PATIENT
  Age: 4 Year
  Sex: Female

DRUGS (4)
  1. IDELVION [Suspect]
     Active Substance: COAGULATION FACTOR IX RECOMBINANT HUMAN
     Indication: Factor IX deficiency
     Dosage: 30 IU/KG, QW(500 IU)
     Route: 042
     Dates: start: 20250401
  2. IDELVION [Suspect]
     Active Substance: COAGULATION FACTOR IX RECOMBINANT HUMAN
     Indication: Factor IX deficiency
     Dosage: 30 IU/KG, QW(500 IU)
     Route: 042
     Dates: start: 20250401
  3. IDELVION [Suspect]
     Active Substance: COAGULATION FACTOR IX RECOMBINANT HUMAN
     Dosage: 30 IU/KG, QW(250 IU)
     Route: 042
     Dates: start: 20250401
  4. IDELVION [Suspect]
     Active Substance: COAGULATION FACTOR IX RECOMBINANT HUMAN
     Dosage: 30 IU/KG, QW(250 IU)
     Route: 042
     Dates: start: 20250401

REACTIONS (3)
  - Tonsillar haemorrhage [Unknown]
  - Tooth pulp haemorrhage [Recovered/Resolved]
  - Tonsillitis [Recovered/Resolved]

NARRATIVE: CASE EVENT DATE: 20250819
